FAERS Safety Report 4664121-0 (Version None)
Quarter: 2005Q2

REPORT INFORMATION
  Report Type: 
  Country: None (occurrence: None)
  Receive Date: 20050516
  Receipt Date: 20050516
  Transmission Date: 20051028
  Serious: Yes (Other)
  Sender: FDA-Public Use
  Company Number: None

PATIENT
  Age: 75 Year
  Sex: Male
  Weight: 70 kg

DRUGS (1)
  1. DURAGESIC  100MCG/ HR [Suspect]
     Dosage: 100MCG/HR   PATCH Q 3 DAYS    TRANSDERMA
     Route: 062
     Dates: start: 20050228, end: 20050304

REACTIONS (2)
  - NAUSEA [None]
  - VOMITING [None]
